FAERS Safety Report 6258131-X (Version None)
Quarter: 2009Q3

REPORT INFORMATION
  Report Type: 
  Country: None (occurrence: None)
  Receive Date: 20090707
  Receipt Date: 20090625
  Transmission Date: 20100115
  Serious: Yes (Hospitalization)
  Sender: FDA-Public Use
  Company Number: FR-PFIZER-2009189796

PATIENT
  Age: 81 Year

DRUGS (9)
  1. ALDACTONE [Suspect]
     Indication: HYPERTENSION
     Dosage: 25 MG, 1X/DAY
     Route: 048
     Dates: end: 20090304
  2. NISISCO [Interacting]
     Indication: HYPERTENSION
     Dosage: 1 DF, 1X/DAY
     Route: 048
     Dates: end: 20090304
  3. LASIX [Interacting]
     Indication: HYPERTENSION
     Dosage: 40 MG, 1X/DAY
     Route: 048
     Dates: end: 20090305
  4. KERLONE [Concomitant]
     Indication: HYPERTENSION
     Dosage: 20 MG, 1X/DAY
     Route: 048
     Dates: end: 20090310
  5. PLAVIX [Concomitant]
     Dosage: 75 MG, 1X/DAY
     Route: 048
  6. TEMESTA [Concomitant]
     Dosage: 2.5 MG, 1X/DAY
     Route: 048
  7. HEXAQUINE [Concomitant]
     Dosage: 1 DF, 2X/DAY
     Route: 048
     Dates: start: 20081001, end: 20090305
  8. PRAXILENE [Concomitant]
     Indication: ARTERITIS OBLITERANS
     Dosage: 200 MG, 3X/DAY
     Route: 048
     Dates: end: 20090306
  9. ELISOR [Concomitant]
     Dosage: 40 MG, 1X/DAY
     Route: 048

REACTIONS (5)
  - DEHYDRATION [None]
  - DRUG INTERACTION [None]
  - HYPERKALAEMIA [None]
  - HYPONATRAEMIA [None]
  - RENAL FAILURE [None]
